FAERS Safety Report 9901501 (Version 2)
Quarter: 2014Q1

REPORT INFORMATION
  Report Type: Spontaneous
  Country: US (occurrence: US)
  Receive Date: 20140217
  Receipt Date: 20140217
  Transmission Date: 20141002
  Serious: No
  Sender: FDA-Public Use
  Company Number: US-GILEAD-2011-0042202

PATIENT
  Age: 79 Year
  Sex: Female

DRUGS (4)
  1. LETAIRIS [Suspect]
     Indication: PULMONARY HYPERTENSION
     Route: 048
     Dates: start: 20100106
  2. LETAIRIS [Suspect]
     Indication: CHRONIC OBSTRUCTIVE PULMONARY DISEASE
  3. LETAIRIS [Suspect]
     Indication: CORONARY ARTERY DISEASE
  4. LETAIRIS [Suspect]
     Indication: MITRAL VALVE INCOMPETENCE

REACTIONS (4)
  - Accident [Unknown]
  - Contusion [Unknown]
  - Joint injury [Unknown]
  - Malaise [Unknown]
